FAERS Safety Report 16724376 (Version 2)
Quarter: 2019Q3

REPORT INFORMATION
  Report Type: Report from Study
  Country: US (occurrence: US)
  Receive Date: 20190821
  Receipt Date: 20190909
  Transmission Date: 20191005
  Serious: Yes (Hospitalization)
  Sender: FDA-Public Use
  Company Number: US-EISAI MEDICAL RESEARCH-EC-2019-060783

PATIENT
  Age: 58 Year
  Sex: Female
  Weight: 90.4 kg

DRUGS (19)
  1. MARINOL [Concomitant]
     Active Substance: DRONABINOL
  2. DILAUDID [Concomitant]
     Active Substance: HYDROMORPHONE HYDROCHLORIDE
  3. COMPAZINE [Concomitant]
     Active Substance: PROCHLORPERAZINE MALEATE
  4. ONDANSETRON [Concomitant]
     Active Substance: ONDANSETRON
  5. ERIBULIN [Suspect]
     Active Substance: ERIBULIN
     Indication: SARCOMA
     Route: 041
     Dates: start: 20190709, end: 20190827
  6. PEMBROLIZUMAB. [Suspect]
     Active Substance: PEMBROLIZUMAB
     Indication: SARCOMA
     Route: 041
     Dates: start: 20190709, end: 20190827
  7. SENNOKOT [Concomitant]
  8. ATIVAN [Concomitant]
     Active Substance: LORAZEPAM
  9. KYTRIL [Concomitant]
     Active Substance: GRANISETRON HYDROCHLORIDE
  10. OXYCODONE [Concomitant]
     Active Substance: OXYCODONE
  11. ZOFRAN [Concomitant]
     Active Substance: ONDANSETRON HYDROCHLORIDE
  12. PREDNISONE. [Concomitant]
     Active Substance: PREDNISONE
  13. VITAMIN D3 [Concomitant]
     Active Substance: CHOLECALCIFEROL
  14. ZYPREXA [Concomitant]
     Active Substance: OLANZAPINE
  15. ZYRTEC [Concomitant]
     Active Substance: CETIRIZINE HYDROCHLORIDE
  16. AMLODIPINE [Concomitant]
     Active Substance: AMLODIPINE BESYLATE
  17. PRILOSEC [Concomitant]
     Active Substance: OMEPRAZOLE MAGNESIUM
  18. MIRALAX [Concomitant]
     Active Substance: POLYETHYLENE GLYCOL 3350
  19. DRISDOL [Concomitant]
     Active Substance: ERGOCALCIFEROL

REACTIONS (3)
  - Pyrexia [Not Recovered/Not Resolved]
  - Oedema peripheral [Unknown]
  - Pain in extremity [Unknown]

NARRATIVE: CASE EVENT DATE: 20190814
